FAERS Safety Report 7234098-2 (Version None)
Quarter: 2011Q1

REPORT INFORMATION
  Report Type: 
  Country: None (occurrence: None)
  Receive Date: 20110113
  Receipt Date: 20110113
  Transmission Date: 20110831
  Serious: No
  Sender: FDA-Public Use
  Company Number: None

PATIENT
  Age: 45 Year
  Sex: Female
  Weight: 61.2356 kg

DRUGS (17)
  1. SOMA [Concomitant]
  2. ZINC [Concomitant]
  3. CLARITIN [Concomitant]
  4. LOVAZA [Concomitant]
  5. FLAXSEED [Concomitant]
  6. HYDROCHLOROTHIAZIDE [Concomitant]
  7. POTASSIUM CHLORIDE [Concomitant]
  8. SINGULAIR [Concomitant]
  9. CA [Concomitant]
  10. XIFAXAN [Suspect]
     Indication: DYSPEPSIA
     Dosage: 550 MG BID PO
     Route: 048
     Dates: start: 20101223, end: 20101224
  11. XIFAXAN [Suspect]
     Indication: ABDOMINAL DISTENSION
     Dosage: 550 MG BID PO
     Route: 048
     Dates: start: 20101223, end: 20101224
  12. XIFAXAN [Suspect]
     Indication: OVERGROWTH BACTERIAL
     Dosage: 550 MG BID PO
     Route: 048
     Dates: start: 20101223, end: 20101224
  13. ASPIRIN [Concomitant]
  14. M.V.I. [Concomitant]
  15. NORCO [Concomitant]
  16. TRAMADOL HCL [Concomitant]
  17. VITAMIN B [Concomitant]

REACTIONS (9)
  - FLATULENCE [None]
  - MUSCLE SPASMS [None]
  - GASTROINTESTINAL INFECTION [None]
  - ABDOMINAL PAIN [None]
  - OVERGROWTH BACTERIAL [None]
  - CONSTIPATION [None]
  - PAIN IN EXTREMITY [None]
  - ABDOMINAL DISTENSION [None]
  - DIARRHOEA [None]
